FAERS Safety Report 5551185-5 (Version None)
Quarter: 2007Q4

REPORT INFORMATION
  Report Type: 
  Country: None (occurrence: None)
  Receive Date: 20071212
  Receipt Date: 20071207
  Transmission Date: 20080405
  Serious: Yes (Other)
  Sender: FDA-Public Use
  Company Number: GB-ALLERGAN-0713597US

PATIENT
  Sex: Male
  Weight: 26.7 kg

DRUGS (2)
  1. LUMIGAN [Suspect]
     Indication: GLAUCOMA
     Dosage: 1 DF, QD
  2. ASPIRIN [Concomitant]
     Dosage: 75 MG, UNK

REACTIONS (1)
  - NIGHT BLINDNESS [None]
